FAERS Safety Report 21268525 (Version 1)
Quarter: 2022Q3

REPORT INFORMATION
  Report Type: Spontaneous
  Country: US (occurrence: US)
  Receive Date: 20220830
  Receipt Date: 20220830
  Transmission Date: 20221026
  Serious: No
  Sender: FDA-Public Use
  Company Number: US-APOTEX-2022AP010469

PATIENT
  Age: 82 Year
  Sex: Male

DRUGS (5)
  1. DILTIAZEM [Suspect]
     Active Substance: DILTIAZEM
     Indication: Blood pressure abnormal
     Dosage: 1 DOSAGE FORM, QD (1 CAPSULE IN THE MORNING)
     Route: 048
     Dates: start: 202207
  2. DILTIAZEM [Suspect]
     Active Substance: DILTIAZEM
     Indication: Heart rate irregular
  3. BUSPIRONE [Concomitant]
     Active Substance: BUSPIRONE HYDROCHLORIDE
     Indication: Anxiety
     Dosage: 2 DF QD, (5MG IN THE MORNING AND 5MG AT NIGHT)
     Route: 048
  4. BUSPIRONE [Concomitant]
     Active Substance: BUSPIRONE HYDROCHLORIDE
     Dosage: 2 DF QD, (TAKES 2.5MG TWICE A DAY INSTEAD)
     Route: 048
  5. VITAMINS NOS [Concomitant]
     Active Substance: VITAMINS
     Indication: Supplementation therapy
     Dosage: UNK UNK, QD
     Route: 048

REACTIONS (2)
  - Abdominal discomfort [Recovered/Resolved]
  - Oedema peripheral [Not Recovered/Not Resolved]

NARRATIVE: CASE EVENT DATE: 20220701
